FAERS Safety Report 4746757-1 (Version None)
Quarter: 2005Q3

REPORT INFORMATION
  Report Type: 
  Country: None (occurrence: None)
  Receive Date: 20050816
  Receipt Date: 20050816
  Transmission Date: 20060218
  Serious: Yes (Other)
  Sender: FDA-Public Use
  Company Number: None

PATIENT
  Age: 55 Year
  Sex: Male
  Weight: 104.3273 kg

DRUGS (1)
  1. TOLMETIN SODIUM [Suspect]
     Indication: ARTHRALGIA
     Dosage: 400 MG CAP MYL 3 TIMES A DAY
     Dates: start: 20050421, end: 20050427

REACTIONS (2)
  - ABDOMINAL PAIN UPPER [None]
  - GASTRIC ULCER [None]
